FAERS Safety Report 8357172-6 (Version None)
Quarter: 2012Q2

REPORT INFORMATION
  Report Type: 
  Country: None (occurrence: None)
  Receive Date: 20120514
  Receipt Date: 20120509
  Transmission Date: 20120825
  Serious: Yes (Other)
  Sender: FDA-Public Use
  Company Number: CA-PFIZER INC-2012039751

PATIENT
  Age: 10 Year
  Sex: Male
  Weight: 44 kg

DRUGS (9)
  1. METHYLPHENIDATE [Concomitant]
     Dosage: UNK
  2. ZIPRASIDONE HCL [Suspect]
     Dosage: UNK
  3. FLUVOXAMINE [Concomitant]
     Dosage: UNK
  4. OLANZAPINE [Suspect]
     Dosage: UNK
  5. DIVALPROEX SODIUM [Concomitant]
     Dosage: UNK
  6. FENTANYL-100 [Suspect]
     Indication: ANALGESIC THERAPY
     Dosage: UNK
  7. CODEINE [Suspect]
     Indication: POSTOPERATIVE ANALGESIA
     Dosage: UNK
  8. MORPHINE SULFATE [Suspect]
     Indication: PERIOPERATIVE ANALGESIA
     Dosage: UNK
  9. PROPOFOL [Concomitant]
     Dosage: UNK

REACTIONS (1)
  - SEROTONIN SYNDROME [None]
